FAERS Safety Report 4727032-8 (Version None)
Quarter: 2005Q3

REPORT INFORMATION
  Report Type: 
  Country: None (occurrence: None)
  Receive Date: 20050726
  Receipt Date: 20050712
  Transmission Date: 20060218
  Serious: Yes (Hospitalization)
  Sender: FDA-Public Use
  Company Number: US-2005-003378

PATIENT
  Age: 43 Year
  Sex: Female
  Weight: 49 kg

DRUGS (6)
  1. BETASERON [Suspect]
     Indication: RELAPSING-REMITTING MULTIPLE SCLEROSIS
     Dosage: SEE IMAGE
     Route: 058
     Dates: start: 20020426, end: 20041205
  2. BETASERON [Suspect]
     Indication: RELAPSING-REMITTING MULTIPLE SCLEROSIS
     Dosage: SEE IMAGE
     Route: 058
     Dates: start: 20050111
  3. CILOSTAZOL [Concomitant]
  4. PREVACID [Concomitant]
  5. BACLOFEN [Concomitant]
  6. HYDROCODONE (HYDROCODONE) [Concomitant]

REACTIONS (6)
  - BREAST MASS [None]
  - FIBROADENOMA [None]
  - MEMORY IMPAIRMENT [None]
  - MOBILITY DECREASED [None]
  - PRECANCEROUS CELLS PRESENT [None]
  - URINARY TRACT INFECTION [None]
